FAERS Safety Report 6885784-5 (Version None)
Quarter: 2010Q3

REPORT INFORMATION
  Report Type: 
  Country: None (occurrence: None)
  Receive Date: 20100729
  Receipt Date: 20080309
  Transmission Date: 20110219
  Serious: No
  Sender: FDA-Public Use
  Company Number: US-PFIZER INC-2008022082

PATIENT
  Sex: Female
  Weight: 61.818 kg

DRUGS (1)
  1. CELEBREX [Suspect]
     Indication: PAIN
     Dates: start: 20080227, end: 20080227

REACTIONS (1)
  - VAGINAL HAEMORRHAGE [None]
